FAERS Safety Report 15330305 (Version 3)
Quarter: 2018Q4

REPORT INFORMATION
  Report Type: Spontaneous
  Country: US (occurrence: US)
  Receive Date: 20180829
  Receipt Date: 20181207
  Transmission Date: 20190204
  Serious: No
  Sender: FDA-Public Use
  Company Number: US-SA-2018SA240189

PATIENT
  Age: 52 Year
  Sex: Female

DRUGS (2)
  1. KEVZARA [Suspect]
     Active Substance: SARILUMAB
     Dosage: UNK
     Dates: start: 201805
  2. KEVZARA [Suspect]
     Active Substance: SARILUMAB
     Dosage: UNK
     Route: 058
     Dates: start: 20180801

REACTIONS (4)
  - Blood cholesterol increased [Unknown]
  - Lipids increased [Unknown]
  - Visual impairment [Unknown]
  - Palpitations [Unknown]

NARRATIVE: CASE EVENT DATE: 201808
